FAERS Safety Report 5105029-6 (Version None)
Quarter: 2006Q3

REPORT INFORMATION
  Report Type: 
  Country: None (occurrence: None)
  Receive Date: 20060911
  Receipt Date: 20060823
  Transmission Date: 20061208
  Serious: Yes (Other)
  Sender: FDA-Public Use
  Company Number: US200608005043

PATIENT
  Age: 35 Year
  Sex: Female

DRUGS (2)
  1. CYMBALTA [Suspect]
     Indication: DEPRESSION
     Dosage: 30 MG, UNK, UNK
  2. METHOTREXATE [Concomitant]

REACTIONS (1)
  - LIVER FUNCTION TEST ABNORMAL [None]
